FAERS Safety Report 17001675 (Version 7)
Quarter: 2019Q4

REPORT INFORMATION
  Report Type: Spontaneous
  Country: PL (occurrence: PL)
  Receive Date: 20191106
  Receipt Date: 20191126
  Transmission Date: 20200122
  Serious: Yes (Hospitalization, Other)
  Sender: FDA-Public Use
  Company Number: PL-PFIZER INC-2019475873

PATIENT
  Age: 66 Year
  Sex: Male
  Weight: 123 kg

DRUGS (13)
  1. ENOXAPARIN [ENOXAPARIN SODIUM] [Suspect]
     Active Substance: ENOXAPARIN SODIUM
     Indication: THROMBOSIS PROPHYLAXIS
     Dosage: 160 MG, 1X/DAY
     Route: 058
  2. HYDROCHLOROTHIAZIDE. [Suspect]
     Active Substance: HYDROCHLOROTHIAZIDE
     Indication: DIURETIC THERAPY
     Dosage: 12.5 MG, UNK
     Route: 048
  3. DOXYCYCLINE. [Suspect]
     Active Substance: DOXYCYCLINE
     Indication: INFLAMMATION
     Dosage: UNK
     Route: 065
  4. IRON [Suspect]
     Active Substance: IRON
     Indication: ANAEMIA
     Dosage: 100 MG, 1X/DAY
     Route: 042
  5. TORASEMIDE [Suspect]
     Active Substance: TORSEMIDE
     Indication: DIURETIC THERAPY
     Dosage: UNK, 1X/DAY (UP TO 40 MG/DAY IV)
     Route: 042
  6. PANTOPRAZOLE [Suspect]
     Active Substance: PANTOPRAZOLE
     Indication: PROPHYLAXIS
     Dosage: 20 MG, 1X/DAY (20 MILLIGRAM, QD)
     Route: 065
  7. LERCANIDIPINE [Suspect]
     Active Substance: LERCANIDIPINE
     Indication: HYPERTENSION
     Dosage: 20 MG, 1X/DAY
     Route: 048
  8. LEVOSIMENDAN [Suspect]
     Active Substance: LEVOSIMENDAN
     Indication: RIGHT VENTRICULAR FAILURE
     Dosage: UNK (24-HOUR 0.1 G/KG/MIN INTRAVENOUS INFUSION)
     Route: 042
  9. FUROSEMIDE. [Suspect]
     Active Substance: FUROSEMIDE
     Indication: DIURETIC THERAPY
     Dosage: UNK, 1X/DAY (UP TO 100 MG/DAY IV)
     Route: 042
  10. ALBUMIN [Suspect]
     Active Substance: ALBUMIN HUMAN
     Dosage: UNK
     Route: 065
  11. FERINJECT [Suspect]
     Active Substance: FERRIC CARBOXYMALTOSE
     Indication: ANAEMIA
     Dosage: 100 MG, 1X/DAY
     Route: 042
  12. VENOFER [Suspect]
     Active Substance: IRON SUCROSE
     Indication: ANAEMIA
     Dosage: 100 MG, 1X/DAY
     Route: 042
  13. WARFARIN [Suspect]
     Active Substance: WARFARIN
     Indication: THROMBOSIS PROPHYLAXIS
     Dosage: UNK
     Route: 065

REACTIONS (4)
  - Fatigue [Unknown]
  - Hypertension [Recovering/Resolving]
  - Drug resistance [Recovered/Resolved]
  - Heart rate increased [Recovering/Resolving]
